FAERS Safety Report 4390724-7 (Version None)
Quarter: 2004Q2

REPORT INFORMATION
  Report Type: 
  Country: None (occurrence: None)
  Receive Date: 20040630
  Receipt Date: 20040616
  Transmission Date: 20050107
  Serious: Yes (Other)
  Sender: FDA-Public Use
  Company Number: S04-USA-02268-01

PATIENT
  Age: 13 Year
  Sex: Male

DRUGS (3)
  1. LEXAPRO [Suspect]
     Indication: DEPRESSION
     Dosage: 10 MG ONCE PO
     Route: 048
     Dates: start: 20040422, end: 20040422
  2. ALLEGRA [Concomitant]
  3. PROTOPIC [Concomitant]

REACTIONS (7)
  - DRUG INEFFECTIVE [None]
  - DRY MOUTH [None]
  - EXTRAPYRAMIDAL DISORDER [None]
  - FEAR [None]
  - NECK PAIN [None]
  - SEDATION [None]
  - VOMITING [None]
